FAERS Safety Report 8341658-4 (Version None)
Quarter: 2012Q2

REPORT INFORMATION
  Report Type: 
  Country: None (occurrence: None)
  Receive Date: 20120507
  Receipt Date: 20120427
  Transmission Date: 20120825
  Serious: Yes (Death, Other)
  Sender: FDA-Public Use
  Company Number: GR-PFIZER INC-2012031932

PATIENT
  Age: 40 Year
  Sex: Female

DRUGS (16)
  1. IFOSFAMIDE [Concomitant]
  2. CISPLATIN [Suspect]
     Indication: CHRONIC LYMPHOCYTIC LEUKAEMIA
  3. DOXORUBICIN HCL [Suspect]
     Indication: CHRONIC LYMPHOCYTIC LEUKAEMIA
  4. FLUDARABINE PHOSPHATE [Suspect]
     Indication: CHRONIC LYMPHOCYTIC LEUKAEMIA
  5. RITUXIMAB [Concomitant]
  6. BLEOMYCIN [Concomitant]
  7. VINBLASTINE [Concomitant]
  8. VINCRISTINE [Suspect]
     Indication: CHRONIC LYMPHOCYTIC LEUKAEMIA
  9. DACARBAZINE [Concomitant]
  10. ETOPOSIDE [Suspect]
     Indication: CHRONIC LYMPHOCYTIC LEUKAEMIA
  11. CYCLOPHOSPHAMIDE [Concomitant]
  12. PREDNISOLONE [Concomitant]
  13. NAVELBINE [Concomitant]
  14. METHYLPREDNISOLONE [Concomitant]
  15. CYTARABINE [Concomitant]
  16. MITOGUAZONE [Concomitant]

REACTIONS (4)
  - APLASIA [None]
  - CHRONIC LYMPHOCYTIC LEUKAEMIA [None]
  - SEPSIS [None]
  - DISEASE PROGRESSION [None]
